FAERS Safety Report 20068022 (Version 1)
Quarter: 2021Q4

REPORT INFORMATION
  Report Type: Spontaneous
  Country: US (occurrence: None)
  Receive Date: 20211112
  Receipt Date: 20211112
  Transmission Date: 20220303
  Serious: No
  Sender: FDA-Public Use
  Company Number: None

PATIENT
  Age: 60 Year
  Sex: Female
  Weight: 100 kg

DRUGS (1)
  1. BAMLANIVIMAB [Suspect]
     Active Substance: BAMLANIVIMAB
     Indication: COVID-19
     Dosage: OTHER QUANTITY : 700/1400 MG;?FREQUENCY : ONCE;?
     Route: 042
     Dates: start: 20211103, end: 20211103

REACTIONS (5)
  - Nausea [None]
  - Abdominal pain [None]
  - Infusion related reaction [None]
  - Vomiting [None]
  - Hypersensitivity [None]

NARRATIVE: CASE EVENT DATE: 20211103
